FAERS Safety Report 7737060-6 (Version None)
Quarter: 2011Q3

REPORT INFORMATION
  Report Type: 
  Country: None (occurrence: None)
  Receive Date: 20110908
  Receipt Date: 20110901
  Transmission Date: 20111222
  Serious: Yes (Hospitalization, Disabling, Other)
  Sender: FDA-Public Use
  Company Number: US-PFIZER INC-2011204857

PATIENT
  Sex: Male
  Weight: 105.22 kg

DRUGS (5)
  1. CABERGOLINE [Suspect]
     Indication: PROLACTINOMA
     Dosage: UNK
     Dates: start: 20100901
  2. TRAMADOL [Concomitant]
     Indication: PAIN
     Dosage: 50 MG, UNK
  3. ZOFRAN [Concomitant]
     Indication: VOMITING
     Dosage: 4 MG, AS NEEDED
  4. CABERGOLINE [Suspect]
     Dosage: 1 MG, 2X/WEEK
  5. ALBUTEROL SULFATE AUTOHALER [Concomitant]
     Indication: DYSPNOEA
     Dosage: UNK

REACTIONS (14)
  - CARDIOVASCULAR DISORDER [None]
  - BLOOD PRESSURE INCREASED [None]
  - SLEEP APNOEA SYNDROME [None]
  - FEELING OF BODY TEMPERATURE CHANGE [None]
  - HEART RATE ABNORMAL [None]
  - INSOMNIA [None]
  - OEDEMA PERIPHERAL [None]
  - HYPOPITUITARISM [None]
  - FEELING JITTERY [None]
  - HYPERHIDROSIS [None]
  - GASTRIC DISORDER [None]
  - DEHYDRATION [None]
  - BLOOD PRESSURE ORTHOSTATIC [None]
  - BLOOD TESTOSTERONE DECREASED [None]
